FAERS Safety Report 6756923-1 (Version None)
Quarter: 2010Q2

REPORT INFORMATION
  Report Type: 
  Country: None (occurrence: None)
  Receive Date: 20100603
  Receipt Date: 20100603
  Transmission Date: 20101027
  Serious: Yes (Hospitalization)
  Sender: FDA-Public Use
  Company Number: None

PATIENT
  Age: 63 Year
  Sex: Male
  Weight: 79.5 kg

DRUGS (2)
  1. BORTEZOMIB [Suspect]
     Dosage: 2.6 MG IV
     Route: 042
     Dates: start: 20091016
  2. LENALIDOMIDE [Suspect]
     Dosage: 10 MG PO
     Route: 048

REACTIONS (4)
  - ABDOMINAL PAIN [None]
  - DIARRHOEA [None]
  - FAECES DISCOLOURED [None]
  - ORTHOSTATIC HYPOTENSION [None]
